FAERS Safety Report 8026152-2 (Version None)
Quarter: 2012Q1

REPORT INFORMATION
  Report Type: 
  Country: None (occurrence: None)
  Receive Date: 20120105
  Receipt Date: 20110127
  Transmission Date: 20120608
  Serious: No
  Sender: FDA-Public Use
  Company Number: US-ABBOTT-11P-163-0701410-00

PATIENT
  Sex: Female
  Weight: 90.8 kg

DRUGS (7)
  1. COZAAR [Concomitant]
     Indication: HYPERTENSION
  2. LIDODERM [Concomitant]
     Indication: PAIN
     Dosage: 5% PATCH
  3. TRAMADOL HCL [Concomitant]
     Indication: PAIN
     Dosage: 50MG DAILY PRN
  4. IBUPROFEN [Concomitant]
     Indication: PRODUCT USED FOR UNKNOWN INDICATION
  5. SYNTHROID [Suspect]
     Indication: THYROIDECTOMY
     Dosage: 0.1MCG DAILY
     Dates: start: 20110120
  6. NEURONTIN [Concomitant]
     Indication: BACK PAIN
  7. HYDROCHLOROTHIAZIDE [Concomitant]
     Indication: HYPERTENSION

REACTIONS (1)
  - ARTHRALGIA [None]
